FAERS Safety Report 7051758-7 (Version None)
Quarter: 2010Q4

REPORT INFORMATION
  Report Type: 
  Country: None (occurrence: None)
  Receive Date: 20101019
  Receipt Date: 20101014
  Transmission Date: 20110411
  Serious: Yes (Other)
  Sender: FDA-Public Use
  Company Number: US-TEVA-248546USA

PATIENT
  Age: 71 Year
  Sex: Female

DRUGS (9)
  1. COPAXONE [Suspect]
     Indication: MULTIPLE SCLEROSIS
     Route: 058
  2. SUMATRIPTAN SUCCINATE [Concomitant]
     Indication: MIGRAINE
  3. TOPIRAMATE [Concomitant]
     Indication: DEPRESSION
  4. ANTIDEPRESSANTS [Concomitant]
     Indication: DEPRESSION
  5. RALOXIFENE HYDROCHLORIDE [Concomitant]
  6. ALENDRONATE SODIUM [Concomitant]
  7. TRAZODONE HCL [Concomitant]
  8. HYDROXYCARBAMIDE [Concomitant]
     Indication: THROMBOCYTOPENIA
  9. MEMANTINE HYDROCHLORIDE [Concomitant]

REACTIONS (1)
  - BREAST CANCER [None]
